FAERS Safety Report 25223192 (Version 1)
Quarter: 2025Q2

REPORT INFORMATION
  Report Type: Spontaneous
  Country: US (occurrence: US)
  Receive Date: 20250422
  Receipt Date: 20250422
  Transmission Date: 20250717
  Serious: Yes (Other)
  Sender: COOPERSURGICAL
  Company Number: US-COOPERSURGICAL, INC.-2025CPS002930

PATIENT
  Age: 36 Year
  Sex: Female
  Weight: 53.061 kg

DRUGS (1)
  1. PARAGARD T 380A [Suspect]
     Active Substance: COPPER
     Indication: Contraception
     Route: 015
     Dates: start: 20100510

REACTIONS (14)
  - Abortion induced [Recovered/Resolved]
  - Internal haemorrhage [Unknown]
  - Salpingectomy [Recovered/Resolved]
  - Oophorectomy [Recovered/Resolved]
  - Reproductive complication associated with device [Unknown]
  - Device breakage [Unknown]
  - Foreign body in reproductive tract [Unknown]
  - Complication of device removal [Unknown]
  - Pregnancy with contraceptive device [Recovered/Resolved]
  - Drug ineffective [Unknown]
  - Sexual dysfunction [Unknown]
  - Emotional disorder [Unknown]
  - Abnormal uterine bleeding [Unknown]
  - Menstrual disorder [Unknown]

NARRATIVE: CASE EVENT DATE: 20161222
